FAERS Safety Report 5416396-8 (Version None)
Quarter: 2007Q3

REPORT INFORMATION
  Report Type: 
  Country: None (occurrence: None)
  Receive Date: 20070816
  Receipt Date: 20070814
  Transmission Date: 20080115
  Serious: Yes (Life-Threatening, Other)
  Sender: FDA-Public Use
  Company Number: PHBS2007BR12736

PATIENT
  Sex: Female
  Weight: 60 kg

DRUGS (5)
  1. MICARDIS HCT [Concomitant]
     Indication: HYPERTENSION
     Dosage: 40 MG/DAY
  2. TRAVATAN [Concomitant]
     Indication: GLAUCOMA
     Dosage: 1 DROP/NIGHT
  3. TRUSOPT [Concomitant]
     Indication: GLAUCOMA
  4. COMBIVENT [Concomitant]
     Indication: ASTHMA
     Dosage: UNK, PRN
     Dates: start: 20060101
  5. FORASEQ [Suspect]
     Indication: ASTHMA
     Dosage: UNK, TID

REACTIONS (14)
  - CARDIAC DISORDER [None]
  - CHEST DISCOMFORT [None]
  - CHEST PAIN [None]
  - DEVICE MALFUNCTION [None]
  - DRY THROAT [None]
  - DYSPNOEA [None]
  - FEELING ABNORMAL [None]
  - FEELING COLD [None]
  - GLAUCOMA [None]
  - HYPERTENSION [None]
  - HYPOAESTHESIA [None]
  - INCORRECT DOSE ADMINISTERED [None]
  - RESPIRATORY DEPRESSION [None]
  - TACHYCARDIA [None]
